FAERS Safety Report 11411005 (Version 1)
Quarter: 2015Q3

REPORT INFORMATION
  Report Type: Spontaneous
  Country: US (occurrence: None)
  Receive Date: 20150820
  Receipt Date: 20150820
  Transmission Date: 20151125
  Serious: No
  Sender: FDA-Public Use
  Company Number: None

PATIENT
  Age: 26 Year
  Sex: Female
  Weight: 74.84 kg

DRUGS (1)
  1. NAPROXEN 500 MG [Suspect]
     Active Substance: NAPROXEN
     Indication: PAIN
     Route: 048
     Dates: start: 20150816, end: 20150819

REACTIONS (3)
  - Paraesthesia oral [None]
  - Burning sensation [None]
  - Swelling [None]

NARRATIVE: CASE EVENT DATE: 20150819
